FAERS Safety Report 6146409-X (Version None)
Quarter: 2009Q2

REPORT INFORMATION
  Report Type: 
  Country: None (occurrence: None)
  Receive Date: 20090403
  Receipt Date: 20090403
  Transmission Date: 20091009
  Serious: No
  Sender: FDA-Public Use
  Company Number: None

PATIENT
  Age: 81 Year
  Sex: Male
  Weight: 76.2043 kg

DRUGS (1)
  1. FLUOROURACIL [Suspect]
     Indication: BASAL CELL CARCINOMA
     Dosage: APPLY TO AFFECTED AREA TWICE DAILY
     Dates: start: 20080224

REACTIONS (1)
  - PRURITUS [None]
